FAERS Safety Report 5368643-9 (Version None)
Quarter: 2007Q2

REPORT INFORMATION
  Report Type: 
  Country: None (occurrence: None)
  Receive Date: 20070620
  Receipt Date: 20070613
  Transmission Date: 20071010
  Serious: Yes (Life-Threatening, Other)
  Sender: FDA-Public Use
  Company Number: 13790555

PATIENT
  Sex: Female

DRUGS (1)
  1. EMSAM [Suspect]
     Indication: MAJOR DEPRESSION
     Dosage: 6 MILLIGRAM, TD
     Dates: start: 20070215

REACTIONS (10)
  - ALCOHOL USE [None]
  - CYANOSIS [None]
  - DISORIENTATION [None]
  - DIZZINESS [None]
  - HYPERVENTILATION [None]
  - HYPOTENSION [None]
  - MOVEMENT DISORDER [None]
  - PARAESTHESIA [None]
  - SPEECH DISORDER [None]
  - UNRESPONSIVE TO STIMULI [None]
